FAERS Safety Report 6134060-7 (Version None)
Quarter: 2009Q1

REPORT INFORMATION
  Report Type: 
  Country: None (occurrence: None)
  Receive Date: 20090217
  Receipt Date: 20071214
  Transmission Date: 20090719
  Serious: No
  Sender: FDA-Public Use
  Company Number: AEUSA200700285

PATIENT
  Age: 50 Year
  Sex: Female
  Weight: 65.7716 kg

DRUGS (5)
  1. PROLASTIN [Suspect]
     Indication: ALPHA-1 ANTI-TRYPSIN DEFICIENCY
     Dosage: 3980 MG; 1X; IV
     Route: 042
     Dates: start: 20020101
  2. COMBIVENT [Concomitant]
  3. PULMICORT-100 [Concomitant]
  4. DUONEB [Concomitant]
  5. HERBAL PREPARATION [Concomitant]

REACTIONS (1)
  - INFLUENZA LIKE ILLNESS [None]
